FAERS Safety Report 9225366 (Version 1)
Quarter: 2013Q1

REPORT INFORMATION
  Report Type: Spontaneous
  Country: US (occurrence: None)
  Receive Date: 20120912
  Receipt Date: 20120912
  Transmission Date: 20140127
  Serious: No
  Sender: FDA-Public Use
  Company Number: 2012SP025195

PATIENT
  Age: 34 Year
  Sex: Female

DRUGS (2)
  1. SAPHRIS [Suspect]
     Indication: BIPOLAR DISORDER
     Route: 060
     Dates: start: 20111230, end: 20111230
  2. LITHIUM CARBONATE [Concomitant]

REACTIONS (3)
  - Anxiety [None]
  - Loss of consciousness [None]
  - Underdose [None]
